FAERS Safety Report 4335859-X (Version None)
Quarter: 2004Q2

REPORT INFORMATION
  Report Type: 
  Country: None (occurrence: None)
  Receive Date: 20040409
  Receipt Date: 20040322
  Transmission Date: 20050107
  Serious: Yes (Other)
  Sender: FDA-Public Use
  Company Number: PHRM2004FR01352

PATIENT
  Age: 28 Year
  Sex: Female
  Weight: 63 kg

DRUGS (1)
  1. SYNTOCINON [Suspect]
     Indication: LABOUR INDUCTION
     Dosage: 5 IU, ONCE2SDO
     Dates: start: 20040322, end: 20040322

REACTIONS (3)
  - ANGIONEUROTIC OEDEMA [None]
  - COUGH [None]
  - DYSPNOEA [None]
